FAERS Safety Report 9042611 (Version 1)
Quarter: 2013Q1

REPORT INFORMATION
  Report Type: Report from Study
  Country: US (occurrence: US)
  Receive Date: 20130129
  Receipt Date: 20130129
  Transmission Date: 20140127
  Serious: No
  Sender: FDA-Public Use
  Company Number: US-ABBOTT-12P-163-0905721-00

PATIENT
  Sex: Female

DRUGS (2)
  1. HUMIRA 40 MG/0.8 ML PEN [Suspect]
     Indication: PRODUCT USED FOR UNKNOWN INDICATION
  2. THYROID PILL [Concomitant]
     Indication: THYROID DISORDER

REACTIONS (2)
  - Application site rash [Recovered/Resolved]
  - Wrong drug administered [Recovered/Resolved]
